FAERS Safety Report 20335664 (Version 1)
Quarter: 2022Q1

REPORT INFORMATION
  Report Type: Spontaneous
  Country: US (occurrence: US)
  Receive Date: 20220114
  Receipt Date: 20220114
  Transmission Date: 20220423
  Serious: Yes (Disabling)
  Sender: FDA-Public Use
  Company Number: US-SUNOVION-2022SUN000083

PATIENT
  Sex: Male

DRUGS (1)
  1. APTIOM [Suspect]
     Active Substance: ESLICARBAZEPINE ACETATE
     Indication: Seizure
     Dosage: 1200 MG, QD (800 MG AND 400 MG TOGETHER)
     Route: 048

REACTIONS (2)
  - Road traffic accident [Not Recovered/Not Resolved]
  - Decreased activity [Not Recovered/Not Resolved]
